FAERS Safety Report 7283130-9 (Version None)
Quarter: 2011Q1

REPORT INFORMATION
  Report Type: 
  Country: None (occurrence: None)
  Receive Date: 20110209
  Receipt Date: 20101115
  Transmission Date: 20110831
  Serious: No
  Sender: FDA-Public Use
  Company Number: A0892572A

PATIENT
  Age: 85 Year
  Sex: Female

DRUGS (4)
  1. GLIMEPIRIDE [Concomitant]
  2. PAXIL [Suspect]
     Indication: DEPRESSION
     Dosage: 25MG PER DAY
     Route: 048
  3. LORAZEPAM [Concomitant]
  4. LIPITOR [Concomitant]

REACTIONS (1)
  - FATIGUE [None]
